FAERS Safety Report 9099356 (Version 1)
Quarter: 2013Q1

REPORT INFORMATION
  Report Type: Spontaneous
  Country: US (occurrence: US)
  Receive Date: 20130214
  Receipt Date: 20130214
  Transmission Date: 20140127
  Serious: No
  Sender: FDA-Public Use
  Company Number: US-COVIDIEN/TYCO HEALTHCARE/MALLINCKRODT-T201204181

PATIENT
  Sex: Female
  Weight: 75.73 kg

DRUGS (15)
  1. FENTANYL TRANSDERMAL SYSTEM [Suspect]
     Indication: PAIN
     Dosage: 50 UG/HR, EVERY 48 HOURS
     Route: 062
     Dates: start: 2012
  2. FENTANYL TRANSDERMAL SYSTEM [Suspect]
     Dosage: 25 UG/HR, EVERY 48 HOURS
     Route: 062
     Dates: start: 2012
  3. THYROID THERAPY [Concomitant]
     Indication: HYPOTHYROIDISM
  4. LYRICA [Concomitant]
     Indication: FIBROMYALGIA
  5. LUNESTA [Concomitant]
     Indication: INSOMNIA
     Dosage: UNK, PRN
  6. DICLOFENAC [Concomitant]
  7. IRON [Concomitant]
     Indication: ANAEMIA
  8. VICODIN [Concomitant]
     Indication: BREAKTHROUGH PAIN
  9. ZOMIG [Concomitant]
     Indication: MIGRAINE
     Dosage: UNK, PRN
  10. DOCUSATE SODIUM [Concomitant]
  11. ALPRAZOLAM [Concomitant]
     Indication: ANXIETY
  12. GINKGO BILOBA [Concomitant]
  13. TURMERIC WITH CURCUMIN STANDARD EXTRACT [Concomitant]
     Indication: INFLAMMATION
  14. EVENING PRIMROSE OIL [Concomitant]
  15. FENTANYL                           /00174602/ [Concomitant]
     Indication: PAIN
     Dosage: 75 MCG/HR, Q 48 HRS
     Dates: end: 2012

REACTIONS (2)
  - Drug screen negative [Unknown]
  - Drug effect decreased [Not Recovered/Not Resolved]
